FAERS Safety Report 13652285 (Version 3)
Quarter: 2019Q3

REPORT INFORMATION
  Report Type: Report from Study
  Country: None (occurrence: MX)
  Receive Date: 20170614
  Receipt Date: 20190705
  Transmission Date: 20191004
  Serious: Yes (Hospitalization)
  Sender: FDA-Public Use
  Company Number: MX-ABBVIE-17P-107-2007170-00

PATIENT
  Age: 73 Year
  Sex: Female
  Weight: 45 kg

DRUGS (9)
  1. CALCIUM/ISOFLAVONE [Concomitant]
     Indication: OSTEOPENIA
     Dosage: AS REQUIRED
     Route: 048
  2. TALPRAMIN [Concomitant]
     Indication: DEPRESSION
     Dosage: DAILY DOSE: 25MG; 1 EVERY NIGHT
     Route: 048
  3. KOMBIGLYZE XR [Concomitant]
     Active Substance: METFORMIN HYDROCHLORIDE\SAXAGLIPTIN HYDROCHLORIDE
     Indication: DIABETES MELLITUS
     Dosage: STRENGTH: 5/1000MG
     Route: 048
  4. DIOVAN [Concomitant]
     Active Substance: VALSARTAN
     Indication: PRODUCT USED FOR UNKNOWN INDICATION
     Route: 048
  5. CONTROLIP TRILIPIX [Suspect]
     Active Substance: FENOFIBRATE
     Indication: DYSLIPIDAEMIA
     Route: 048
     Dates: start: 20170131
  6. ROBOTEK [Concomitant]
     Indication: BLOOD CHOLESTEROL
  7. ROBOTEK [Concomitant]
     Indication: DYSLIPIDAEMIA
     Dosage: 1.5 EVERY MORNING
     Route: 048
  8. CYMBALTA [Concomitant]
     Active Substance: DULOXETINE HYDROCHLORIDE
     Indication: DEPRESSION
     Route: 048
  9. CENTRUM SILVER [Concomitant]
     Active Substance: MINERALS\VITAMINS
     Indication: PRODUCT USED FOR UNKNOWN INDICATION

REACTIONS (3)
  - Gastroenteritis [Recovered/Resolved]
  - Acute kidney injury [Recovered/Resolved]
  - Ketoacidosis [Recovered/Resolved]

NARRATIVE: CASE EVENT DATE: 20170509
